FAERS Safety Report 12818222 (Version 1)
Quarter: 2016Q4

REPORT INFORMATION
  Report Type: Spontaneous
  Country: CN (occurrence: CN)
  Receive Date: 20161005
  Receipt Date: 20161005
  Transmission Date: 20170207
  Serious: Yes (Hospitalization, Other)
  Sender: FDA-Public Use
  Company Number: CN-GILEAD-2016-0236803

PATIENT

DRUGS (1)
  1. ADEFOVIR DIPIVOXIL. [Suspect]
     Active Substance: ADEFOVIR DIPIVOXIL
     Indication: CHRONIC HEPATITIS B
     Dosage: 10 MG, QD
     Route: 065

REACTIONS (9)
  - Bone pain [Recovering/Resolving]
  - Malaise [Recovering/Resolving]
  - Vitamin D deficiency [Unknown]
  - Movement disorder [Recovering/Resolving]
  - Blood alkaline phosphatase increased [Unknown]
  - Fanconi syndrome acquired [Unknown]
  - Osteomalacia [Unknown]
  - Hypophosphataemia [Unknown]
  - Fatigue [Recovering/Resolving]
